FAERS Safety Report 20981121 (Version 2)
Quarter: 2022Q4

REPORT INFORMATION
  Report Type: Spontaneous
  Country: US (occurrence: US)
  Receive Date: 20220620
  Receipt Date: 20221230
  Transmission Date: 20230113
  Serious: Yes (Other)
  Sender: FDA-Public Use
  Company Number: US-PFIZER INC-202200846369

PATIENT
  Age: 77 Year
  Sex: Male

DRUGS (14)
  1. XELJANZ XR [Suspect]
     Active Substance: TOFACITINIB CITRATE
     Dosage: 11 MG, DAILY
     Route: 048
  2. LEFLUNOMIDE [Concomitant]
     Active Substance: LEFLUNOMIDE
  3. ALLOPURINOL [Concomitant]
     Active Substance: ALLOPURINOL
  4. LATANOPROST [Concomitant]
     Active Substance: LATANOPROST
  5. KETOROLAC TROMETHAMINE [Concomitant]
     Active Substance: KETOROLAC TROMETHAMINE
  6. AMLODIPINE [Concomitant]
     Active Substance: AMLODIPINE BESYLATE
  7. CIPROFLOXACIN [Concomitant]
     Active Substance: CIPROFLOXACIN
  8. ATORVASTATIN [Concomitant]
     Active Substance: ATORVASTATIN
  9. LUMIGAN [Concomitant]
     Active Substance: BIMATOPROST
  10. POTASSIUM [Concomitant]
     Active Substance: POTASSIUM
  11. ACETAMINOPHEN\HYDROCODONE [Concomitant]
     Active Substance: ACETAMINOPHEN\HYDROCODONE
  12. PREDNISOLONE [Concomitant]
     Active Substance: PREDNISOLONE
  13. NAPROXEN [Concomitant]
     Active Substance: NAPROXEN
  14. TAMSULOSIN [Concomitant]
     Active Substance: TAMSULOSIN

REACTIONS (3)
  - Nephrolithiasis [Not Recovered/Not Resolved]
  - Therapeutic product effect incomplete [Unknown]
  - Rash [Unknown]

NARRATIVE: CASE EVENT DATE: 20220601
